FAERS Safety Report 5573958-5 (Version None)
Quarter: 2007Q4

REPORT INFORMATION
  Report Type: 
  Country: None (occurrence: None)
  Receive Date: 20071226
  Receipt Date: 20071218
  Transmission Date: 20080405
  Serious: Yes (Other)
  Sender: FDA-Public Use
  Company Number: JP-ABBOTT-07P-087-0426802-00

PATIENT
  Sex: Female

DRUGS (4)
  1. KLARICID TABLETS [Suspect]
     Indication: DRUG USE FOR UNKNOWN INDICATION
     Route: 048
     Dates: start: 20060406, end: 20060412
  2. CARBAZOCHROME SODIUM SULFONATE [Concomitant]
     Indication: DRUG USE FOR UNKNOWN INDICATION
     Route: 048
     Dates: start: 20060306, end: 20060312
  3. CARBAZOCHROME SODIUM SULFONATE [Concomitant]
     Route: 048
     Dates: start: 20060409, end: 20060410
  4. REBAMIPIDE [Concomitant]
     Indication: DRUG USE FOR UNKNOWN INDICATION
     Route: 048
     Dates: start: 20060406, end: 20060412

REACTIONS (2)
  - ABORTION THREATENED [None]
  - THREATENED LABOUR [None]
